FAERS Safety Report 5320075-5 (Version None)
Quarter: 2007Q1

REPORT INFORMATION
  Report Type: 
  Country: None (occurrence: None)
  Receive Date: 20070215
  Receipt Date: 20060323
  Transmission Date: 20070707
  Serious: No
  Sender: FDA-Public Use
  Company Number: MC200600228

PATIENT
  Age: 70 Year
  Sex: Female

DRUGS (3)
  1. ANGIOMAX [Suspect]
     Indication: PERCUTANEOUS CORONARY INTERVENTION
     Dosage: SEE IMAGE
     Route: 042
  2. PLAVIX [Suspect]
     Dosage: 500 MG
  3. ASPIRIN [Concomitant]

REACTIONS (1)
  - CORONARY ARTERY OCCLUSION [None]
